FAERS Safety Report 8107388-9 (Version None)
Quarter: 2012Q1

REPORT INFORMATION
  Report Type: 
  Country: None (occurrence: None)
  Receive Date: 20120202
  Receipt Date: 20120131
  Transmission Date: 20120608
  Serious: Yes (Other)
  Sender: FDA-Public Use
  Company Number: US-BAYER-2012-010193

PATIENT
  Age: 33 Year
  Sex: Female

DRUGS (3)
  1. COPAXONE [Suspect]
     Indication: MULTIPLE SCLEROSIS
  2. BETASERON [Suspect]
     Indication: MULTIPLE SCLEROSIS
  3. REBIF [Suspect]
     Indication: MULTIPLE SCLEROSIS

REACTIONS (3)
  - MULTIPLE SCLEROSIS RELAPSE [None]
  - INJECTION SITE REACTION [None]
  - INFLUENZA LIKE ILLNESS [None]
